FAERS Safety Report 7475803-X (Version None)
Quarter: 2011Q2

REPORT INFORMATION
  Report Type: 
  Country: None (occurrence: None)
  Receive Date: 20110512
  Receipt Date: 20110509
  Transmission Date: 20111010
  Serious: Yes (Death, Other)
  Sender: FDA-Public Use
  Company Number: PHHY2011GB38320

PATIENT
  Age: 61 Year
  Sex: Female

DRUGS (4)
  1. CITALOPRAM HYDROBROMIDE [Suspect]
     Indication: DEPRESSION
     Dosage: 20 MG, QD
     Route: 048
  2. CLOZAPINE [Interacting]
     Indication: SCHIZOPHRENIA
     Dosage: 200 MG, BID
     Route: 048
     Dates: start: 20101029
  3. DIAZEPAM [Concomitant]
     Indication: ANXIETY
     Dosage: 8 MG, QD
  4. AMISULPRIDE [Concomitant]
     Indication: SCHIZOPHRENIA
     Dosage: 400 MG, QD

REACTIONS (7)
  - INTESTINAL OBSTRUCTION [None]
  - PELVIC ADHESIONS [None]
  - VOMITING [None]
  - MALAISE [None]
  - ASPIRATION [None]
  - DRUG INTERACTION [None]
  - OVERDOSE [None]
